FAERS Safety Report 4718122-4 (Version None)
Quarter: 2005Q3

REPORT INFORMATION
  Report Type: 
  Country: None (occurrence: None)
  Receive Date: 20050718
  Receipt Date: 20050124
  Transmission Date: 20060218
  Serious: Yes (Hospitalization)
  Sender: FDA-Public Use
  Company Number: 2005000187

PATIENT
  Age: 62 Year
  Sex: Female

DRUGS (20)
  1. TARCEVA [Suspect]
     Indication: NON-SMALL CELL LUNG CANCER
     Dosage: 150 MG (PO OD), ORAL
     Route: 048
     Dates: start: 20050103, end: 20050120
  2. AZITHROMYCIN [Concomitant]
  3. SPIRIVA [Concomitant]
  4. SERETIDE MITE [Concomitant]
  5. CEFPROZIL [Concomitant]
  6. PAROXETINE HYDROCHLORIDE [Concomitant]
  7. FOLATE SODIUM [Concomitant]
  8. OXYCODONE HCL [Concomitant]
  9. CLOPIDOGREL BISULFATE [Concomitant]
  10. ATORVASTATIN CALCIUM [Concomitant]
  11. MEGESTROL ACETATE [Concomitant]
  12. PROMETHAZINE HCL [Concomitant]
  13. VICODIN [Concomitant]
  14. BUCINDOLOL HYDROCHLORIDE [Concomitant]
  15. LORAZEPAM [Concomitant]
  16. BENZONATATE [Concomitant]
  17. MINOCYCLINE HYDROCHLORIDE [Concomitant]
  18. CODICLEAR [Concomitant]
  19. ALDACTONE-SALTUCIN FOR INJECTION [Concomitant]
  20. SALBUTAMOL [Concomitant]

REACTIONS (1)
  - INTERSTITIAL LUNG DISEASE [None]
